FAERS Safety Report 25866575 (Version 2)
Quarter: 2025Q4

REPORT INFORMATION
  Report Type: Report from Study
  Country: EU (occurrence: EU)
  Receive Date: 20250930
  Receipt Date: 20251007
  Transmission Date: 20260117
  Serious: Yes (Hospitalization)
  Sender: ALEXION PHARMACEUTICALS
  Company Number: EU-ASTRAZENECA-202509GLO021130DE

PATIENT
  Age: 75 Year
  Sex: Female
  Weight: 89 kg

DRUGS (4)
  1. DURVALUMAB [Suspect]
     Active Substance: DURVALUMAB
     Indication: Hepatobiliary cancer
     Dosage: 1500 MILLIGRAM, Q4W
     Dates: start: 20250625, end: 20250903
  2. DURVALUMAB [Suspect]
     Active Substance: DURVALUMAB
     Dosage: 2000 MILLIGRAM, Q4W
     Dates: start: 20250910, end: 20250910
  3. GEMCITABINE [Concomitant]
     Active Substance: GEMCITABINE
     Dosage: 2000 MG
     Route: 065
     Dates: start: 20250625, end: 20250910
  4. CISPLATIN [Concomitant]
     Active Substance: CISPLATIN
     Dosage: 50 MILLIGRAM
     Route: 065
     Dates: start: 20250625, end: 20250910

REACTIONS (1)
  - Hypertension [Recovered/Resolved]

NARRATIVE: CASE EVENT DATE: 20250924
